FAERS Safety Report 9115128 (Version 1)
Quarter: 2013Q1

REPORT INFORMATION
  Report Type: Spontaneous
  Country: US (occurrence: US)
  Receive Date: 20130225
  Receipt Date: 20130225
  Transmission Date: 20140127
  Serious: No
  Sender: FDA-Public Use
  Company Number: US-COVIDIEN/TYCO HEALTHCARE/MALLINCKRODT-T201103034

PATIENT
  Age: 42 Year
  Sex: Male

DRUGS (1)
  1. GABLOFEN [Suspect]
     Indication: PRODUCT USED FOR UNKNOWN INDICATION
     Dosage: UNK
     Route: 037

REACTIONS (4)
  - Incorrect dose administered [Unknown]
  - Pain [Unknown]
  - Dysphagia [Unknown]
  - Agitation [Unknown]
